FAERS Safety Report 23196894 (Version 1)
Quarter: 2023Q4

REPORT INFORMATION
  Report Type: Spontaneous
  Country: CA (occurrence: None)
  Receive Date: 20231117
  Receipt Date: 20231117
  Transmission Date: 20240110
  Serious: Yes (Other)
  Sender: FDA-Public Use
  Company Number: 2023A257557

PATIENT
  Age: 73 Year
  Sex: Female

DRUGS (8)
  1. SEROQUEL [Suspect]
     Active Substance: QUETIAPINE FUMARATE
     Indication: Bipolar disorder
     Route: 048
  2. SEROQUEL [Suspect]
     Active Substance: QUETIAPINE FUMARATE
     Indication: Anxiety
     Route: 048
  3. RISPERIDONE [Concomitant]
     Active Substance: RISPERIDONE
  4. SILDENAFIL CITRATE [Concomitant]
     Active Substance: SILDENAFIL CITRATE
  5. MAGNESIUM [Concomitant]
     Active Substance: MAGNESIUM
  6. LITHIUM [Concomitant]
     Active Substance: LITHIUM
  7. OZEMPIC [Concomitant]
     Active Substance: SEMAGLUTIDE
  8. PHENOBARBITAL [Concomitant]
     Active Substance: PHENOBARBITAL

REACTIONS (6)
  - Cardiac failure [Unknown]
  - Off label use [Unknown]
  - Parkinsonism [Unknown]
  - Diabetes mellitus [Unknown]
  - COVID-19 [Not Recovered/Not Resolved]
  - Therapeutic response unexpected [Unknown]
